FAERS Safety Report 10084758 (Version 1)
Quarter: 2014Q2

REPORT INFORMATION
  Report Type: Spontaneous
  Country: DE (occurrence: DE)
  Receive Date: 20140417
  Receipt Date: 20140417
  Transmission Date: 20141212
  Serious: Yes (Other)
  Sender: FDA-Public Use
  Company Number: DE-GLAXOSMITHKLINE-D0083637A

PATIENT
  Sex: Male
  Weight: 105 kg

DRUGS (4)
  1. RELVAR ELLIPTA [Suspect]
     Indication: ASTHMA
     Dosage: 114MCG PER DAY
     Route: 055
     Dates: start: 20140331, end: 20140409
  2. PROCORALAN [Concomitant]
     Indication: TACHYCARDIA
     Dosage: 10MG PER DAY
     Route: 065
  3. SEVIKAR [Concomitant]
     Indication: HYPERTENSION
     Dosage: 57.5MG PER DAY
     Route: 048
  4. HCT [Concomitant]

REACTIONS (2)
  - Hypertensive crisis [Recovered/Resolved]
  - Tachycardia [Recovered/Resolved]
